FAERS Safety Report 8836717 (Version 1)
Quarter: 2012Q4

REPORT INFORMATION
  Report Type: Spontaneous
  Country: US (occurrence: None)
  Receive Date: 20121010
  Receipt Date: 20121010
  Transmission Date: 20130627
  Serious: Yes (Hospitalization, Other)
  Sender: FDA-Public Use
  Company Number: COL_12449_2012

PATIENT
  Age: 70 Year
  Sex: Female

DRUGS (1)
  1. COLGATE OPTIC WHITE COOL MILD MINT [Suspect]
     Indication: DENTAL CARIES
     Route: 048
     Dates: start: 20120801, end: 20120924

REACTIONS (5)
  - Chest pain [None]
  - Gastritis [None]
  - Pharyngeal inflammation [None]
  - Abdominal pain upper [None]
  - Gastritis [None]
